FAERS Safety Report 11976235 (Version 1)
Quarter: 2016Q1

REPORT INFORMATION
  Report Type: Spontaneous
  Country: US (occurrence: US)
  Receive Date: 20160129
  Receipt Date: 20160129
  Transmission Date: 20160526
  Serious: No
  Sender: FDA-Public Use
  Company Number: US-BAYER-2016-012675

PATIENT
  Age: 6 Year
  Sex: Female
  Weight: 19.5 kg

DRUGS (2)
  1. MIRALAX [Suspect]
     Active Substance: POLYETHYLENE GLYCOL 3350
     Indication: CONSTIPATION
     Dosage: 8 OZ, BID
     Route: 048
     Dates: start: 20160111, end: 20160115
  2. MIRALAX [Suspect]
     Active Substance: POLYETHYLENE GLYCOL 3350
     Indication: CONSTIPATION
     Dosage: 8 OZ, BID
     Route: 048
     Dates: start: 20160118

REACTIONS (2)
  - Diarrhoea [Unknown]
  - Product use issue [None]

NARRATIVE: CASE EVENT DATE: 20160111
